FAERS Safety Report 19650829 (Version 2)
Quarter: 2021Q3

REPORT INFORMATION
  Report Type: Spontaneous
  Country: US (occurrence: US)
  Receive Date: 20210802
  Receipt Date: 20210901
  Transmission Date: 20211014
  Serious: Yes (Disabling)
  Sender: FDA-Public Use
  Company Number: US-ASTRAZENECA-2021A646411

PATIENT
  Age: 28650 Day
  Sex: Female
  Weight: 97.5 kg

DRUGS (1)
  1. BREZTRI AEROSPHERE [Suspect]
     Active Substance: BUDESONIDE\FORMOTEROL\GLYCOPYRRONIUM
     Indication: CHRONIC OBSTRUCTIVE PULMONARY DISEASE
     Dosage: 2 AS REQUIRED
     Route: 055

REACTIONS (2)
  - Dyspnoea [Recovering/Resolving]
  - Feeling abnormal [Recovering/Resolving]

NARRATIVE: CASE EVENT DATE: 20190901
